FAERS Safety Report 12486331 (Version 1)
Quarter: 2016Q2

REPORT INFORMATION
  Report Type: Spontaneous
  Country: US (occurrence: US)
  Receive Date: 20160621
  Receipt Date: 20160621
  Transmission Date: 20160815
  Serious: Yes (Other)
  Sender: FDA-Public Use
  Company Number: US-PFIZER INC-2016304813

PATIENT
  Age: 69 Year
  Sex: Male

DRUGS (3)
  1. CAVERJECT [Concomitant]
     Active Substance: ALPROSTADIL
     Dosage: UNK
  2. VIAGRA [Suspect]
     Active Substance: SILDENAFIL CITRATE
     Dosage: 100 MG, UNK (100 MG TABLET AT A TIME)
  3. MUSE [Concomitant]
     Active Substance: ALPROSTADIL
     Dosage: UNK

REACTIONS (3)
  - Cyanopsia [Unknown]
  - Cerebrovascular accident [Unknown]
  - Drug ineffective [Unknown]
